FAERS Safety Report 18530961 (Version 2)
Quarter: 2021Q1

REPORT INFORMATION
  Report Type: Spontaneous
  Country: US (occurrence: US)
  Receive Date: 20201121
  Receipt Date: 20210122
  Transmission Date: 20210419
  Serious: Yes (Other)
  Sender: FDA-Public Use
  Company Number: US-009507513-2011USA007204

PATIENT
  Age: 15 Year
  Sex: Female
  Weight: 96 kg

DRUGS (1)
  1. NEXPLANON [Suspect]
     Active Substance: ETONOGESTREL
     Dosage: 1 ROD EVERY 3 YEARS, DOMINANT LEFT UPPER ARM
     Route: 059
     Dates: start: 20190524

REACTIONS (7)
  - Device dislocation [Not Recovered/Not Resolved]
  - Vaginal haemorrhage [Unknown]
  - Complication associated with device [Not Recovered/Not Resolved]
  - Device placement issue [Not Recovered/Not Resolved]
  - Menstruation irregular [Unknown]
  - Complication of device removal [Not Recovered/Not Resolved]
  - Device issue [Not Recovered/Not Resolved]

NARRATIVE: CASE EVENT DATE: 20190524
